FAERS Safety Report 9332877 (Version 1)
Quarter: 2013Q2

REPORT INFORMATION
  Report Type: Spontaneous
  Country: FR (occurrence: FR)
  Receive Date: 20130606
  Receipt Date: 20130606
  Transmission Date: 20140414
  Serious: Yes (Other)
  Sender: FDA-Public Use
  Company Number: FR-BRISTOL-MYERS SQUIBB COMPANY-18978171

PATIENT
  Age: 67 Year
  Sex: Male

DRUGS (1)
  1. ABILIFY TABS [Suspect]
     Indication: PERSONALITY DISORDER
     Route: 048

REACTIONS (2)
  - Diabetes mellitus [Unknown]
  - Diabetic coma [Unknown]
